FAERS Safety Report 15467158 (Version 2)
Quarter: 2018Q4

REPORT INFORMATION
  Report Type: Report from Study
  Country: None (occurrence: US)
  Receive Date: 20181005
  Receipt Date: 20181018
  Transmission Date: 20190204
  Serious: Yes (Hospitalization, Other)
  Sender: FDA-Public Use
  Company Number: US-ABBVIE-18K-163-2507429-00

PATIENT
  Age: 43 Year
  Sex: Female
  Weight: 92.62 kg

DRUGS (27)
  1. VITAMIN C [Concomitant]
     Active Substance: ASCORBIC ACID
     Indication: VITAMIN SUPPLEMENTATION
  2. FORTEO [Concomitant]
     Active Substance: TERIPARATIDE
     Indication: BONE LOSS
  3. FENTANYL. [Concomitant]
     Active Substance: FENTANYL
     Indication: PAIN
  4. GABAPENTIN. [Concomitant]
     Active Substance: GABAPENTIN
     Indication: NEURALGIA
  5. FLECAINIDE [Concomitant]
     Active Substance: FLECAINIDE
     Indication: ATRIAL FLUTTER
  6. OXYCODONE [Concomitant]
     Active Substance: OXYCODONE
     Indication: PAIN
  7. IBUPROFEN. [Concomitant]
     Active Substance: IBUPROFEN
     Indication: PAIN
  8. HUMIRA [Suspect]
     Active Substance: ADALIMUMAB
     Indication: PSORIASIS
     Route: 058
     Dates: start: 200904, end: 2013
  9. BACTRIM [Suspect]
     Active Substance: SULFAMETHOXAZOLE\TRIMETHOPRIM
     Indication: CELLULITIS
     Route: 065
     Dates: start: 2015, end: 2015
  10. METOPROLOL. [Concomitant]
     Active Substance: METOPROLOL
     Indication: HEART RATE INCREASED
  11. VITAMIN B12 [Concomitant]
     Active Substance: CYANOCOBALAMIN
     Indication: VITAMIN SUPPLEMENTATION
  12. ADVAIR HFA [Concomitant]
     Active Substance: FLUTICASONE PROPIONATE\SALMETEROL XINAFOATE
     Indication: ASTHMA
  13. ZINC. [Concomitant]
     Active Substance: ZINC
     Indication: MINERAL SUPPLEMENTATION
  14. PREDNISONE. [Suspect]
     Active Substance: PREDNISONE
     Indication: MESENTERITIS
     Route: 048
     Dates: start: 2008, end: 201701
  15. OMEPRAZOLE. [Concomitant]
     Active Substance: OMEPRAZOLE
     Indication: GASTROOESOPHAGEAL REFLUX DISEASE
  16. ZANTAC [Concomitant]
     Active Substance: RANITIDINE HYDROCHLORIDE
     Indication: DYSPEPSIA
  17. PREDNISONE. [Suspect]
     Active Substance: PREDNISONE
     Route: 048
     Dates: start: 201701
  18. WELLBUTRIN [Concomitant]
     Active Substance: BUPROPION HYDROCHLORIDE
     Indication: DEPRESSION
  19. HUMIRA [Suspect]
     Active Substance: ADALIMUMAB
     Route: 058
     Dates: start: 201809
  20. FOLIC ACID. [Concomitant]
     Active Substance: FOLIC ACID
     Indication: VITAMIN SUPPLEMENTATION
  21. SERTRALINE [Concomitant]
     Active Substance: SERTRALINE HYDROCHLORIDE
     Indication: DEPRESSION
  22. VITAMIN D3 [Concomitant]
     Active Substance: CHOLECALCIFEROL
     Indication: VITAMIN SUPPLEMENTATION
  23. VITAMIN E [Concomitant]
     Active Substance: .ALPHA.-TOCOPHEROL
     Indication: VITAMIN SUPPLEMENTATION
  24. TYLENOL [Concomitant]
     Active Substance: ACETAMINOPHEN
     Indication: PAIN
  25. ZOFRAN [Concomitant]
     Active Substance: ONDANSETRON HYDROCHLORIDE
     Indication: NAUSEA
  26. ZYRTEC [Concomitant]
     Active Substance: CETIRIZINE HYDROCHLORIDE
     Indication: HYPERSENSITIVITY
  27. SOMA [Concomitant]
     Active Substance: CARISOPRODOL
     Indication: PAIN

REACTIONS (19)
  - Lymphoedema [Recovering/Resolving]
  - Cellulitis [Recovered/Resolved]
  - Bone disorder [Not Recovered/Not Resolved]
  - Weight decreased [Recovering/Resolving]
  - Peroneal nerve palsy [Recovering/Resolving]
  - Spinal fracture [Recovered/Resolved]
  - Spinal fracture [Recovered/Resolved]
  - Blister [Recovered/Resolved]
  - Spinal fracture [Recovered/Resolved]
  - Pre-existing condition improved [Recovering/Resolving]
  - Pyrexia [Recovered/Resolved]
  - Bone loss [Recovering/Resolving]
  - Supraventricular tachycardia [Recovered/Resolved]
  - Spinal fracture [Recovered/Resolved]
  - Spinal fracture [Recovered/Resolved]
  - Stevens-Johnson syndrome [Recovered/Resolved]
  - Sciatica [Recovered/Resolved]
  - Localised oedema [Recovered/Resolved]
  - Therapeutic response unexpected [Recovering/Resolving]

NARRATIVE: CASE EVENT DATE: 2013
